FAERS Safety Report 4727516-2 (Version None)
Quarter: 2005Q3

REPORT INFORMATION
  Report Type: 
  Country: None (occurrence: None)
  Receive Date: 20050727
  Receipt Date: 20050727
  Transmission Date: 20060218
  Serious: No
  Sender: FDA-Public Use
  Company Number: None

PATIENT
  Age: 54 Year
  Sex: Female
  Weight: 75.7507 kg

DRUGS (5)
  1. MOBIC [Suspect]
     Indication: OSTEOARTHRITIS
     Dosage: 1 TAB BY MOUTH ONCE DAILY
     Route: 048
     Dates: start: 20050501, end: 20050601
  2. CYMBALTA [Concomitant]
  3. ESTRADIOL [Concomitant]
  4. FOSAMAX [Concomitant]
  5. HYDROCODONE BITARTRATE + ACETAMINOPHEN [Concomitant]

REACTIONS (3)
  - DYSPNOEA [None]
  - PITTING OEDEMA [None]
  - TINNITUS [None]
